FAERS Safety Report 23867451 (Version 1)
Quarter: 2024Q2

REPORT INFORMATION
  Report Type: Spontaneous
  Country: US (occurrence: None)
  Receive Date: 20240516
  Receipt Date: 20240516
  Transmission Date: 20240715
  Serious: Yes (Death)
  Sender: FDA-Public Use
  Company Number: None

PATIENT
  Age: 63 Year
  Sex: Female

DRUGS (3)
  1. TACROLIMUS [Suspect]
     Active Substance: TACROLIMUS
     Indication: Acute myeloid leukaemia
     Dosage: 1MG DAILY ORAL
     Route: 048
     Dates: start: 202403
  2. RYDAPT [Suspect]
     Active Substance: MIDOSTAURIN
     Indication: Acute myeloid leukaemia
     Dosage: 502MG TWICE DAILY ORAL?
     Route: 048
     Dates: start: 202308
  3. XOSPATA [Concomitant]
     Active Substance: GILTERITINIB

REACTIONS (1)
  - Death [None]

NARRATIVE: CASE EVENT DATE: 20240509
